FAERS Safety Report 5094249-5 (Version None)
Quarter: 2006Q3

REPORT INFORMATION
  Report Type: 
  Country: None (occurrence: None)
  Receive Date: 20060831
  Receipt Date: 20060828
  Transmission Date: 20061208
  Serious: Yes (Other)
  Sender: FDA-Public Use
  Company Number: BR-GLAXOSMITHKLINE-A0618565A

PATIENT
  Age: 33 Year
  Sex: Female
  Weight: 48 kg

DRUGS (1)
  1. AEROLIN [Suspect]
     Indication: BRONCHITIS
     Dates: start: 20050801

REACTIONS (2)
  - APNOEA [None]
  - DRUG INEFFECTIVE [None]
